FAERS Safety Report 5394203-X (Version None)
Quarter: 2007Q3

REPORT INFORMATION
  Report Type: 
  Country: None (occurrence: None)
  Receive Date: 20070723
  Receipt Date: 20070409
  Transmission Date: 20080115
  Serious: No
  Sender: FDA-Public Use
  Company Number: A0647028A

PATIENT

DRUGS (3)
  1. AVANDIA [Suspect]
     Route: 048
  2. ACTOS [Suspect]
     Route: 048
  3. AVANDAMET [Suspect]
     Route: 048

REACTIONS (2)
  - OEDEMA [None]
  - WEIGHT INCREASED [None]
